FAERS Safety Report 11123663 (Version 6)
Quarter: 2018Q3

REPORT INFORMATION
  Report Type: Report from Study
  Country: BR (occurrence: BR)
  Receive Date: 20150519
  Receipt Date: 20180917
  Transmission Date: 20181010
  Serious: Yes (Other)
  Sender: FDA-Public Use
  Company Number: PHHY2015BR050716

PATIENT
  Age: 50 Year
  Sex: Male
  Weight: 65 kg

DRUGS (6)
  1. SANDOSTATIN LAR DEPOT [Suspect]
     Active Substance: OCTREOTIDE ACETATE
     Dosage: 30 MG, QMO (EVERY 30 DAYS)
     Route: 030
  2. PAMELOR [Concomitant]
     Active Substance: NORTRIPTYLINE HYDROCHLORIDE
     Indication: PITUITARY TUMOUR
     Dosage: 2 DF (20 MG), QD
     Route: 048
  3. LAMITOR [Concomitant]
     Active Substance: LAMOTRIGINE
     Indication: PAIN PROPHYLAXIS
     Dosage: 25 MG, QD
     Route: 048
  4. SANDOSTATIN LAR DEPOT [Suspect]
     Active Substance: OCTREOTIDE ACETATE
     Indication: ACROMEGALY
     Dosage: 20 MG EVERY 28 DAYS
     Route: 030
     Dates: start: 2014, end: 201509
  5. SANDOSTATIN LAR DEPOT [Suspect]
     Active Substance: OCTREOTIDE ACETATE
     Indication: PITUITARY TUMOUR
     Dosage: 30 OT, UNK
     Route: 030
     Dates: start: 201805
  6. FLANAX CAPS [Concomitant]
     Active Substance: NAPROXEN
     Indication: PAIN
     Dosage: 1 DF, 4 TIMES A DAY
     Route: 048

REACTIONS (20)
  - Arthralgia [Recovering/Resolving]
  - Malaise [Unknown]
  - Blood testosterone decreased [Unknown]
  - Nausea [Recovering/Resolving]
  - Apnoea [Unknown]
  - Cholelithiasis [Recovered/Resolved]
  - Nervousness [Unknown]
  - Pain in extremity [Recovering/Resolving]
  - Abdominal distension [Not Recovered/Not Resolved]
  - Headache [Not Recovered/Not Resolved]
  - Neoplasm progression [Not Recovered/Not Resolved]
  - Glossitis [Unknown]
  - Insomnia [Unknown]
  - Body height increased [Not Recovered/Not Resolved]
  - Asthenia [Not Recovered/Not Resolved]
  - Insulin-like growth factor increased [Recovering/Resolving]
  - Confusional state [Unknown]
  - Fear [Unknown]
  - Hair growth abnormal [Unknown]
  - Fatigue [Unknown]

NARRATIVE: CASE EVENT DATE: 20150417
